FAERS Safety Report 7536859-9 (Version None)
Quarter: 2011Q2

REPORT INFORMATION
  Report Type: 
  Country: None (occurrence: None)
  Receive Date: 20110609
  Receipt Date: 20110531
  Transmission Date: 20111010
  Serious: Yes (Death)
  Sender: FDA-Public Use
  Company Number: NL-ACTELION-A-CH2009-26461

PATIENT
  Sex: Female

DRUGS (7)
  1. TRACLEER [Suspect]
     Indication: SKIN ULCER
     Dosage: 62.5 MG, BID
     Route: 048
     Dates: start: 20090113
  2. DICLOFENAC SODIUM [Concomitant]
  3. IRBESARTAN [Concomitant]
  4. TRACLEER [Suspect]
     Dosage: 125 MG, BID
     Route: 048
     Dates: end: 20090702
  5. PREDNISONE [Concomitant]
  6. RISEDRONIC ACID [Concomitant]
  7. OMEPRAZOLE [Concomitant]

REACTIONS (7)
  - INTESTINAL ISCHAEMIA [None]
  - MYOCARDIAL ISCHAEMIA [None]
  - HAEMOGLOBIN DECREASED [None]
  - PRURITUS [None]
  - PNEUMONIA [None]
  - VOLVULUS OF SMALL BOWEL [None]
  - HYPOVOLAEMIC SHOCK [None]
